FAERS Safety Report 9310808 (Version 1)
Quarter: 2013Q2

REPORT INFORMATION
  Report Type: Spontaneous
  Country: CA (occurrence: CA)
  Receive Date: 20130528
  Receipt Date: 20130528
  Transmission Date: 20140414
  Serious: Yes (Other)
  Sender: FDA-Public Use
  Company Number: CA-SHIRE-ALL1-2013-02588

PATIENT
  Sex: Female
  Weight: 53.06 kg

DRUGS (4)
  1. ADDERALL XR [Suspect]
     Indication: DEPRESSION
     Dosage: 10 MG, AS REQ^D
     Route: 048
     Dates: start: 201208
  2. ADDERALL XR [Suspect]
     Indication: ATTENTION DEFICIT/HYPERACTIVITY DISORDER
     Dosage: 20 MG, AS REQ^D
     Route: 048
     Dates: start: 201208
  3. ADDERALL XR [Suspect]
     Indication: ANXIETY
     Dosage: 10 MG, 1X/DAY:QD
     Route: 048
     Dates: start: 2013
  4. WELLBUTRIN [Suspect]
     Indication: MAJOR DEPRESSION
     Dosage: UNK, UNKNOWN
     Route: 065
     Dates: start: 201305

REACTIONS (17)
  - Major depression [Unknown]
  - Increased appetite [Recovering/Resolving]
  - Therapeutic response unexpected [Unknown]
  - Feeling jittery [Recovered/Resolved]
  - Pruritus [Not Recovered/Not Resolved]
  - Acne [Not Recovered/Not Resolved]
  - Skin odour abnormal [Recovered/Resolved]
  - Seborrhoea [Not Recovered/Not Resolved]
  - Musculoskeletal stiffness [Unknown]
  - Erythema [Unknown]
  - Fatigue [Unknown]
  - Drug effect decreased [Recovering/Resolving]
  - Drug prescribing error [Not Recovered/Not Resolved]
  - Headache [Not Recovered/Not Resolved]
  - Nervousness [Unknown]
  - Anxiety [Unknown]
  - Somnolence [Unknown]
